FAERS Safety Report 19897277 (Version 1)
Quarter: 2021Q3

REPORT INFORMATION
  Report Type: Spontaneous
  Country: CA (occurrence: CA)
  Receive Date: 20210930
  Receipt Date: 20210930
  Transmission Date: 20211014
  Serious: Yes (Death, Other)
  Sender: FDA-Public Use
  Company Number: CA-AUROBINDO-AUR-APL-2021-040397

PATIENT

DRUGS (4)
  1. METRONIDAZOLE. [Suspect]
     Active Substance: METRONIDAZOLE
     Indication: NEOPLASM
     Dosage: 1500 MILLIGRAM/SQ. METER, ONCE A DAY
     Route: 048
  2. ETOPOSIDE. [Suspect]
     Active Substance: ETOPOSIDE
     Indication: NEOPLASM
     Dosage: 100 MILLIGRAM/SQ. METER, ONCE A DAY
     Route: 042
  3. KETOCONAZOLE. [Suspect]
     Active Substance: KETOCONAZOLE
     Indication: NEOPLASM
     Dosage: 700 MILLIGRAM/SQ. METER, ONCE A DAY
     Route: 048
  4. METRONIDAZOLE. [Suspect]
     Active Substance: METRONIDAZOLE
     Dosage: 500 MILLIGRAM/SQ. METER, TWO TIMES A DAY
     Route: 054

REACTIONS (3)
  - Seizure [Fatal]
  - Pneumonia aspiration [Fatal]
  - Gastrointestinal haemorrhage [Fatal]
